FAERS Safety Report 7269615-X (Version None)
Quarter: 2011Q1

REPORT INFORMATION
  Report Type: 
  Country: None (occurrence: None)
  Receive Date: 20110125
  Receipt Date: 20110113
  Transmission Date: 20110831
  Serious: Yes (Death, Hospitalization, Other)
  Sender: FDA-Public Use
  Company Number: 2011MA000375

PATIENT
  Age: 53 Year
  Sex: Male

DRUGS (10)
  1. KA VIT [Concomitant]
  2. MS CONTIN [Concomitant]
  3. MOVICOL [Concomitant]
  4. XANAX [Concomitant]
  5. CIPROXIN [Concomitant]
  6. NEXAVAR [Suspect]
     Indication: PRODUCT USED FOR UNKNOWN INDICATION
     Dosage: 400 MG;BID;PO
     Route: 048
     Dates: end: 20100823
  7. DUPHALAC [Concomitant]
  8. PANTOPRAZOLE [Concomitant]
  9. CITALOPRAM HYDROBROMIDE TABLETS, 20 MG (PUREPAC) (CITALOPRAM HYDROBROM [Suspect]
     Indication: PRODUCT USED FOR UNKNOWN INDICATION
     Dosage: 20 MG;QD;PO
     Route: 048
     Dates: end: 20100906
  10. INDERAL LA [Concomitant]

REACTIONS (3)
  - INAPPROPRIATE ANTIDIURETIC HORMONE SECRETION [None]
  - RENAL FAILURE ACUTE [None]
  - DELIRIUM [None]
